FAERS Safety Report 8958586 (Version 1)
Quarter: 2012Q4

REPORT INFORMATION
  Report Type: Spontaneous
  Country: US (occurrence: None)
  Receive Date: 20121205
  Receipt Date: 20121205
  Transmission Date: 20130627
  Serious: Yes (Other)
  Sender: FDA-Public Use
  Company Number: None

PATIENT
  Age: 76 Year
  Sex: Female
  Weight: 63.96 kg

DRUGS (4)
  1. PRAVACHOL [Suspect]
     Dates: start: 2003, end: 2005
  2. LIPITOR [Suspect]
     Dates: start: 2005, end: 2007
  3. CRESTOR [Suspect]
     Dates: start: 2007, end: 2011
  4. CRESTOR [Suspect]
     Dates: start: 2012

REACTIONS (3)
  - Myalgia [None]
  - Feeling abnormal [None]
  - Quality of life decreased [None]
